FAERS Safety Report 20660566 (Version 1)
Quarter: 2022Q1

REPORT INFORMATION
  Report Type: Spontaneous
  Country: SI (occurrence: None)
  Receive Date: 20220331
  Receipt Date: 20220331
  Transmission Date: 20220423
  Serious: Yes (Death, Other)
  Sender: FDA-Public Use
  Company Number: SI-009507513-2203SVN004640

PATIENT
  Age: 40 Year
  Sex: Female

DRUGS (3)
  1. GEMCITABINE [Suspect]
     Active Substance: GEMCITABINE
     Indication: Breast cancer
     Dosage: UNK
     Dates: start: 202009
  2. PEMBROLIZUMAB [Suspect]
     Active Substance: PEMBROLIZUMAB
     Indication: Breast cancer
     Dosage: UNK
     Dates: start: 2020
  3. CISPLATIN [Suspect]
     Active Substance: CISPLATIN
     Indication: Breast cancer
     Dosage: UNK
     Dates: start: 202009

REACTIONS (8)
  - Malignant neoplasm progression [Fatal]
  - C-reactive protein increased [Recovering/Resolving]
  - Drug resistance [Unknown]
  - Ascites [Recovered/Resolved]
  - Asthenia [Recovered/Resolved]
  - Neutropenia [Unknown]
  - Infection [Unknown]
  - Pyrexia [Recovering/Resolving]

NARRATIVE: CASE EVENT DATE: 20200101
